FAERS Safety Report 5316382-2 (Version None)
Quarter: 2007Q2

REPORT INFORMATION
  Report Type: 
  Country: None (occurrence: None)
  Receive Date: 20070430
  Receipt Date: 20070420
  Transmission Date: 20071010
  Serious: Yes (Other)
  Sender: FDA-Public Use
  Company Number: TPA2007A00325

PATIENT
  Age: 63 Year
  Sex: Female

DRUGS (6)
  1. ACTOS [Suspect]
     Dosage: PER ORAL
     Route: 048
  2. GLUCOPHAGE [Concomitant]
  3. MICRONASE [Concomitant]
  4. METOPROLOL TARTRATE [Concomitant]
  5. JANUVIA (DRUG USED IN DIABETES) [Concomitant]
  6. NEXIUM [Concomitant]

REACTIONS (4)
  - ANAEMIA [None]
  - MYOCARDIAL INFARCTION [None]
  - OEDEMA PERIPHERAL [None]
  - WEIGHT INCREASED [None]
